FAERS Safety Report 14712783 (Version 6)
Quarter: 2018Q4

REPORT INFORMATION
  Report Type: Report from Study
  Country: CZ (occurrence: CZ)
  Receive Date: 20180404
  Receipt Date: 20181227
  Transmission Date: 20190204
  Serious: Yes (Other)
  Sender: FDA-Public Use
  Company Number: CZ-VELOXIS PHARMACEUTICALS-2045067

PATIENT
  Age: 63 Year
  Sex: Female

DRUGS (51)
  1. ENVARSUS XR [Suspect]
     Active Substance: TACROLIMUS
     Dosage: 16 MG, QD
     Route: 048
     Dates: start: 20180320, end: 20180321
  2. AZITHROMYCIN ANHYDROUS. [Concomitant]
     Active Substance: AZITHROMYCIN ANHYDROUS
     Indication: PROPHYLAXIS
     Dosage: 214 MG, QD
     Dates: start: 20180306
  3. SULTAMICILLIN [Concomitant]
     Active Substance: SULTAMICILLIN
     Indication: PROPHYLAXIS
     Dosage: 6 G, QD
     Dates: start: 20180306
  4. VENTER [Concomitant]
     Indication: PROPHYLAXIS
     Dosage: 4 G, QD
     Dates: start: 20180306
  5. BISEPTOL [Concomitant]
     Active Substance: SULFAMETHOXAZOLE\TRIMETHOPRIM
     Indication: PROPHYLAXIS
     Dosage: 206 MG, UNK
     Dates: start: 20180306
  6. ENVARSUS XR [Suspect]
     Active Substance: TACROLIMUS
     Dosage: 12 MG, QD
     Route: 048
     Dates: start: 20180308, end: 20180308
  7. SPIRONOLACTONE. [Concomitant]
     Active Substance: SPIRONOLACTONE
     Indication: ASCITES
     Dosage: 100 MG, UNK
     Route: 065
  8. ENVARSUS XR [Suspect]
     Active Substance: TACROLIMUS
     Dosage: 18 MG, QD
     Route: 048
     Dates: start: 20180319, end: 20180319
  9. PHYTOMENADIONE [Concomitant]
     Active Substance: PHYTONADIONE
     Indication: PROPHYLAXIS
     Dosage: 20 MG, QD
     Dates: start: 20180306
  10. FUROSEMIDE. [Concomitant]
     Active Substance: FUROSEMIDE
     Indication: ASCITES
     Dosage: 60 MG, UNK
     Route: 065
  11. ENVARSUS XR [Suspect]
     Active Substance: TACROLIMUS
     Dosage: 17 MG, QD
     Route: 048
     Dates: start: 20180404, end: 20180410
  12. OMEPRAZOLE. [Concomitant]
     Active Substance: OMEPRAZOLE
     Indication: PROPHYLAXIS
     Dosage: 40 MG, QD
     Dates: start: 20180306
  13. VALACICLOVIR [Concomitant]
     Active Substance: VALACYCLOVIR HYDROCHLORIDE
     Indication: PROPHYLAXIS
     Dosage: 1000 MG, QD
     Dates: start: 20180306
  14. PREDNISONE. [Concomitant]
     Active Substance: PREDNISONE
     Dosage: 15 MG, QD
     Dates: start: 20180504, end: 20180504
  15. PREDNISONE. [Concomitant]
     Active Substance: PREDNISONE
     Dosage: 2.5 MG, QD
     Dates: start: 20180904, end: 20180904
  16. RIFAXIMIN. [Concomitant]
     Active Substance: RIFAXIMIN
     Indication: PROPHYLAXIS
     Dosage: 1200 MG, UNK
     Route: 065
  17. ENVARSUS XR [Suspect]
     Active Substance: TACROLIMUS
     Indication: PROPHYLAXIS AGAINST TRANSPLANT REJECTION
     Dosage: 9 MG, QD
     Route: 048
     Dates: start: 20180306, end: 20180306
  18. ENVARSUS XR [Suspect]
     Active Substance: TACROLIMUS
     Dosage: 15 MG, QD
     Route: 048
     Dates: start: 20180309, end: 20180313
  19. ENVARSUS XR [Suspect]
     Active Substance: TACROLIMUS
     Dosage: 14 MG, QD
     Route: 048
     Dates: start: 20180314, end: 20180318
  20. ENVARSUS XR [Suspect]
     Active Substance: TACROLIMUS
     Dosage: 20 MG, QD
     Route: 048
     Dates: start: 20180321, end: 20180403
  21. ENVARSUS XR [Suspect]
     Active Substance: TACROLIMUS
     Dosage: 9 MG, QD
     Route: 048
     Dates: start: 20180516, end: 20180717
  22. AMPHO MORONAL [Concomitant]
     Active Substance: AMPHOTERICIN B
     Indication: PROPHYLAXIS
     Dosage: 20 ML, QD
     Dates: start: 20180306
  23. NADROPARIN CALCIUM [Concomitant]
     Active Substance: NADROPARIN CALCIUM
     Indication: PROPHYLAXIS
     Dosage: 0.3 ML, QD
     Dates: start: 20180306, end: 20180307
  24. NADROPARIN CALCIUM [Concomitant]
     Active Substance: NADROPARIN CALCIUM
     Dosage: 0.4 ML, UNK
     Dates: start: 20180307
  25. CALCITRIOL. [Concomitant]
     Active Substance: CALCITRIOL
     Indication: OSTEOPENIA
     Dosage: 0.25 ?G, QD
     Dates: start: 20180313
  26. CALCITRIOL. [Concomitant]
     Active Substance: CALCITRIOL
     Dosage: 0.25 ?G, QD
     Route: 065
  27. URSODEOXYCHOLIC ACID [Concomitant]
     Active Substance: URSODIOL
     Indication: PROPHYLAXIS
     Dosage: 750 MG, QD
     Dates: start: 20180307
  28. LINEZOLID. [Concomitant]
     Active Substance: LINEZOLID
     Indication: PROPHYLAXIS
     Dosage: 600 MG, UNK
     Dates: start: 20180306
  29. PANTOPRAZOLE [Concomitant]
     Active Substance: PANTOPRAZOLE
     Indication: GASTRIC DISORDER
     Dosage: 80 MG, UNK
  30. SPIRONOLACTONE. [Concomitant]
     Active Substance: SPIRONOLACTONE
     Indication: HEPATORENAL SYNDROME
  31. ENVARSUS XR [Suspect]
     Active Substance: TACROLIMUS
     Dosage: 16 MG, QD
     Route: 048
     Dates: start: 20180411, end: 20180417
  32. ENVARSUS XR [Suspect]
     Active Substance: TACROLIMUS
     Dosage: 8 MG, QD
     Route: 048
     Dates: start: 20180505, end: 20180515
  33. ENVARSUS XR [Suspect]
     Active Substance: TACROLIMUS
     Dosage: 8 MG, QD
     Route: 048
     Dates: start: 20180718, end: 20180904
  34. ENVARSUS XR [Suspect]
     Active Substance: TACROLIMUS
     Dosage: 5 MG, QD
     Route: 048
     Dates: start: 20180905
  35. AZITHROMYCIN ANHYDROUS. [Concomitant]
     Active Substance: AZITHROMYCIN ANHYDROUS
     Dosage: 71.4 MG, UNK
     Dates: start: 20180315
  36. CARVEDILOL. [Concomitant]
     Active Substance: CARVEDILOL
     Indication: PORTAL HYPERTENSION
     Dosage: 12.5 MG, UNK
     Route: 065
  37. ENOXAPARIN SODIUM. [Concomitant]
     Active Substance: ENOXAPARIN SODIUM
     Indication: PROPHYLAXIS
     Dosage: 0.2 ML, UNK
     Route: 065
  38. FILGRASTIM [Concomitant]
     Active Substance: FILGRASTIM
     Indication: PANCYTOPENIA
     Dosage: 30 MU, UNK
     Route: 065
  39. ENVARSUS XR [Suspect]
     Active Substance: TACROLIMUS
     Dosage: 10 MG, QD
     Dates: start: 20180307, end: 20180307
  40. MYCOPHENOLATE MOFETIL. [Suspect]
     Active Substance: MYCOPHENOLATE MOFETIL
     Indication: PROPHYLAXIS AGAINST TRANSPLANT REJECTION
     Dosage: 1000 UNK, QD
     Dates: start: 20180313, end: 20180313
  41. ITOPRIDE HYDROCHLORIDE [Concomitant]
     Active Substance: ITOPRIDE HYDROCHLORIDE
     Indication: PROPHYLAXIS
     Dosage: 150 MG, QD
     Dates: start: 20180307
  42. METHYLPREDNISOLONE. [Concomitant]
     Active Substance: METHYLPREDNISOLONE
     Indication: PROPHYLAXIS AGAINST TRANSPLANT REJECTION
     Dosage: 16 MG, QD
     Dates: start: 20180313, end: 20180318
  43. CALCIUM [Concomitant]
     Active Substance: CALCIUM
     Indication: OSTEOPENIA
     Dosage: 500 MG, UNK
     Route: 065
  44. NOREPINEPHRINE. [Concomitant]
     Active Substance: NOREPINEPHRINE
     Indication: PROPHYLAXIS
     Dosage: 3 MG, UNK
     Dates: start: 20180305
  45. ENVARSUS XR [Suspect]
     Active Substance: TACROLIMUS
     Dosage: 12 MG, QD
     Route: 048
     Dates: start: 20180418, end: 20180504
  46. INSULIN HUMAN [Concomitant]
     Active Substance: INSULIN HUMAN
     Indication: PROPHYLAXIS
     Dosage: 50 J, QD
     Dates: start: 20180305
  47. OMEPRAZOLE. [Concomitant]
     Active Substance: OMEPRAZOLE
     Dosage: 80 MG, UNK
     Dates: start: 20180314, end: 20180314
  48. OMEPRAZOLE. [Concomitant]
     Active Substance: OMEPRAZOLE
     Dosage: 40 MG, UNK
     Dates: start: 20180325
  49. PREDNISONE. [Concomitant]
     Active Substance: PREDNISONE
     Indication: PROPHYLAXIS AGAINST TRANSPLANT REJECTION
     Dosage: 20 MG, QD
     Dates: start: 20180313, end: 20180326
  50. PREDNISONE. [Concomitant]
     Active Substance: PREDNISONE
     Dosage: 10 MG, QD
     Dates: start: 20180529, end: 20180529
  51. FUROSEMIDE. [Concomitant]
     Active Substance: FUROSEMIDE
     Indication: HEPATORENAL SYNDROME
     Dosage: 100 MG, UNK
     Dates: start: 20180306

REACTIONS (4)
  - Renal failure [Recovered/Resolved]
  - Leukopenia [Not Recovered/Not Resolved]
  - Haemorrhagic anaemia [Not Recovered/Not Resolved]
  - Hypertension [Not Recovered/Not Resolved]

NARRATIVE: CASE EVENT DATE: 20180305
